FAERS Safety Report 21935189 (Version 1)
Quarter: 2023Q1

REPORT INFORMATION
  Report Type: Spontaneous
  Country: US (occurrence: US)
  Receive Date: 20230201
  Receipt Date: 20230201
  Transmission Date: 20230417
  Serious: Yes (Life-Threatening, Hospitalization, Other)
  Sender: FDA-Public Use
  Company Number: US-GLENMARK PHARMACEUTICALS-2023GMK078368

PATIENT

DRUGS (1)
  1. METFORMIN HYDROCHLORIDE [Suspect]
     Active Substance: METFORMIN HYDROCHLORIDE
     Indication: Type 2 diabetes mellitus
     Dosage: 850 MILLIGRAM, BID
     Route: 065

REACTIONS (10)
  - Dysarthria [Unknown]
  - Confusional state [None]
  - Facial paralysis [Recovered/Resolved]
  - Mental impairment [Unknown]
  - Acute kidney injury [Recovered/Resolved]
  - Distributive shock [Recovered/Resolved]
  - Extra dose administered [Unknown]
  - Azotaemia [Recovered/Resolved]
  - Asthenia [Unknown]
  - Lactic acidosis [Recovered/Resolved]
